FAERS Safety Report 22060962 (Version 2)
Quarter: 2023Q1

REPORT INFORMATION
  Report Type: Spontaneous
  Country: TW (occurrence: TW)
  Receive Date: 20230303
  Receipt Date: 20230307
  Transmission Date: 20230417
  Serious: Yes (Other)
  Sender: FDA-Public Use
  Company Number: TW-PFIZER INC-PV202300039478

PATIENT
  Age: 69 Year
  Sex: Male

DRUGS (4)
  1. TAFAMIDIS [Suspect]
     Active Substance: TAFAMIDIS
     Indication: Cardiac amyloidosis
     Dosage: UNK
     Dates: start: 20220516
  2. TAFAMIDIS [Suspect]
     Active Substance: TAFAMIDIS
     Dosage: UNK, QOD
     Dates: start: 202211
  3. PATISIRAN [Concomitant]
     Active Substance: PATISIRAN
  4. INOTERSEN [Concomitant]
     Active Substance: INOTERSEN

REACTIONS (6)
  - N-terminal prohormone brain natriuretic peptide increased [Unknown]
  - Pain in extremity [Unknown]
  - Oedema [Unknown]
  - Dyspnoea [Unknown]
  - Blood urea increased [Unknown]
  - Off label use [Unknown]

NARRATIVE: CASE EVENT DATE: 20220616
